FAERS Safety Report 18823003 (Version 3)
Quarter: 2021Q1

REPORT INFORMATION
  Report Type: Spontaneous
  Country: AU (occurrence: AU)
  Receive Date: 20210201
  Receipt Date: 20210304
  Transmission Date: 20210419
  Serious: No
  Sender: FDA-Public Use
  Company Number: AU-JNJFOC-20210129189

PATIENT
  Sex: Female

DRUGS (8)
  1. DUROGESIC [Suspect]
     Active Substance: FENTANYL
  2. DUROGESIC [Suspect]
     Active Substance: FENTANYL
  3. DUROGESIC [Suspect]
     Active Substance: FENTANYL
  4. DUROGESIC [Suspect]
     Active Substance: FENTANYL
     Indication: PRODUCT USED FOR UNKNOWN INDICATION
     Dosage: 25 MCG/HR
     Route: 062
  5. DUROGESIC [Suspect]
     Active Substance: FENTANYL
  6. DUROGESIC [Suspect]
     Active Substance: FENTANYL
     Indication: PRODUCT USED FOR UNKNOWN INDICATION
     Dosage: STRENGTH: 50.00 MCG/HR
     Route: 062
     Dates: start: 202008
  7. DUROGESIC [Suspect]
     Active Substance: FENTANYL
  8. DUROGESIC [Suspect]
     Active Substance: FENTANYL

REACTIONS (2)
  - Product adhesion issue [Unknown]
  - Underdose [Unknown]

NARRATIVE: CASE EVENT DATE: 2020
